FAERS Safety Report 20924887 (Version 1)
Quarter: 2022Q2

REPORT INFORMATION
  Report Type: Spontaneous
  Country: US (occurrence: None)
  Receive Date: 20220607
  Receipt Date: 20220607
  Transmission Date: 20220721
  Serious: Yes (Hospitalization)
  Sender: FDA-Public Use
  Company Number: None

PATIENT
  Age: 25 Year
  Sex: Female
  Weight: 69.3 kg

DRUGS (1)
  1. TRUXIMA [Suspect]
     Active Substance: RITUXIMAB-ABBS
     Indication: Focal segmental glomerulosclerosis
     Dosage: OTHER FREQUENCY : ONE DOSE Q 6 MONTH;?
     Route: 041
     Dates: start: 20220606, end: 20220606

REACTIONS (4)
  - Dyspnoea [None]
  - Muscular weakness [None]
  - Throat tightness [None]
  - Infusion related reaction [None]

NARRATIVE: CASE EVENT DATE: 20220607
